FAERS Safety Report 4486665-7 (Version None)
Quarter: 2004Q4

REPORT INFORMATION
  Report Type: 
  Country: None (occurrence: None)
  Receive Date: 20041021
  Receipt Date: 20041008
  Transmission Date: 20050328
  Serious: Yes (Death, Other)
  Sender: FDA-Public Use
  Company Number: 2004066878

PATIENT
  Age: 73 Year
  Sex: Female
  Weight: 86.1834 kg

DRUGS (10)
  1. NEURONTIN [Suspect]
     Indication: NEUROPATHIC PAIN
     Dosage: 900 MG (300 MG, 3 IN 1 D), ORAL
     Route: 048
     Dates: start: 20030806, end: 20040625
  2. NEURONTIN [Suspect]
     Indication: PAIN IN EXTREMITY
     Dosage: 900 MG (300 MG, 3 IN 1 D), ORAL
     Route: 048
     Dates: start: 20030806, end: 20040625
  3. ATENOLOL [Concomitant]
  4. SIMVASTATIN [Concomitant]
  5. FLUOXETINE [Concomitant]
  6. CLOPIDOGREL BISULFATE [Concomitant]
  7. MIRTAZAPINE [Concomitant]
  8. ALENDRONATE SODIUM [Concomitant]
  9. TOLTERODINE TARTRATE [Concomitant]
  10. RAMIPRIL [Concomitant]

REACTIONS (5)
  - APATHY [None]
  - HEART VALVE INSUFFICIENCY [None]
  - MAJOR DEPRESSION [None]
  - MYOCARDIAL INFARCTION [None]
  - POST PROCEDURAL COMPLICATION [None]
